FAERS Safety Report 22292439 (Version 1)
Quarter: 2023Q2

REPORT INFORMATION
  Report Type: Spontaneous
  Country: US (occurrence: US)
  Receive Date: 20230508
  Receipt Date: 20230508
  Transmission Date: 20230722
  Serious: No
  Sender: FDA-Public Use
  Company Number: US-AUROBINDO-AUR-APL-2022-052613

PATIENT
  Age: 73 Year
  Sex: Male
  Weight: 68.038 kg

DRUGS (1)
  1. DEXTROMETHORPHAN HYDROBROMIDE AND GUAIFENESIN [Suspect]
     Active Substance: DEXTROMETHORPHAN HYDROBROMIDE\GUAIFENESIN
     Indication: Product used for unknown indication
     Dosage: UNK (NOT MORE THAN 1 PER DAY)
     Route: 065

REACTIONS (1)
  - Insomnia [Unknown]

NARRATIVE: CASE EVENT DATE: 20221201
